FAERS Safety Report 5511789-2 (Version None)
Quarter: 2007Q4

REPORT INFORMATION
  Report Type: 
  Country: None (occurrence: None)
  Receive Date: 20071109
  Receipt Date: 20071030
  Transmission Date: 20080405
  Serious: Yes (Hospitalization)
  Sender: FDA-Public Use
  Company Number: BE-PFIZER INC-2007086981

PATIENT
  Sex: Female
  Weight: 65 kg

DRUGS (10)
  1. SU-011,248 [Suspect]
     Indication: BREAST CANCER
     Route: 048
  2. DOCETAXEL [Suspect]
     Indication: BREAST CANCER
     Route: 042
  3. TRASTUZUMAB [Suspect]
     Indication: BREAST CANCER
     Route: 042
  4. TRAMADOL HCL [Concomitant]
     Route: 048
  5. LORAMET [Concomitant]
     Route: 048
  6. ACETAMINOPHEN [Concomitant]
     Route: 048
  7. LITICAN [Concomitant]
     Route: 048
     Dates: start: 20070718, end: 20070721
  8. MEDROL [Concomitant]
     Route: 048
     Dates: start: 20070717, end: 20070719
  9. ZOMETA [Concomitant]
     Route: 042
     Dates: start: 20070711, end: 20070711
  10. NEULASTA [Concomitant]
     Route: 058
     Dates: start: 20070906, end: 20070906

REACTIONS (7)
  - FEBRILE NEUTROPENIA [None]
  - MORAXELLA INFECTION [None]
  - MUCOSAL INFLAMMATION [None]
  - PATHOLOGICAL FRACTURE [None]
  - PROTEUS INFECTION [None]
  - PSEUDOMEMBRANOUS COLITIS [None]
  - SEPSIS [None]
